FAERS Safety Report 4522372-X (Version None)
Quarter: 2004Q4

REPORT INFORMATION
  Report Type: 
  Country: None (occurrence: None)
  Receive Date: 20041209
  Receipt Date: 20041124
  Transmission Date: 20050328
  Serious: Yes (Death, Hospitalization)
  Sender: FDA-Public Use
  Company Number: 4694

PATIENT
  Age: 81 Year
  Sex: Male

DRUGS (3)
  1. HYCAMTIN [Suspect]
     Indication: SMALL CELL LUNG CANCER STAGE UNSPECIFIED
     Dosage: 1MGM2 PER DAY
     Route: 042
     Dates: start: 20041012, end: 20041016
  2. RANITIDINE HYDROCHLORIDE [Concomitant]
     Dosage: 100MG PER DAY
     Route: 042
     Dates: start: 20041001, end: 20041020
  3. CLOSTRIDIUM BUTYRICUM [Concomitant]
     Dosage: 9G PER DAY
     Route: 048
     Dates: start: 20041001, end: 20041020

REACTIONS (2)
  - DEATH [None]
  - PANCYTOPENIA [None]
